FAERS Safety Report 5849934-1 (Version None)
Quarter: 2008Q3

REPORT INFORMATION
  Report Type: 
  Country: None (occurrence: None)
  Receive Date: 20080819
  Receipt Date: 20080812
  Transmission Date: 20090109
  Serious: Yes (Death, Other)
  Sender: FDA-Public Use
  Company Number: IQ-ABBOTT-08P-081-0471271-00

PATIENT
  Sex: Female

DRUGS (1)
  1. VALPROATE SODIUM [Suspect]
     Indication: CONVULSION
     Dosage: NOT REPORTED

REACTIONS (2)
  - CONVULSION [None]
  - NO THERAPEUTIC RESPONSE [None]
